FAERS Safety Report 9164140 (Version 1)
Quarter: 2013Q1

REPORT INFORMATION
  Report Type: Spontaneous
  Country: US (occurrence: US)
  Receive Date: 20130315
  Receipt Date: 20130315
  Transmission Date: 20140127
  Serious: No
  Sender: FDA-Public Use
  Company Number: US-009507513-1303USA002013

PATIENT
  Age: 24 None
  Sex: Female
  Weight: 86.17 kg

DRUGS (1)
  1. IMPLANON [Suspect]
     Dosage: 1 DF, UNK
     Dates: start: 201203

REACTIONS (2)
  - Metrorrhagia [Not Recovered/Not Resolved]
  - Device difficult to use [Unknown]
